FAERS Safety Report 8178254-8 (Version None)
Quarter: 2012Q1

REPORT INFORMATION
  Report Type: 
  Country: None (occurrence: None)
  Receive Date: 20120126
  Receipt Date: 20111221
  Transmission Date: 20120608
  Serious: Yes (Other)
  Sender: FDA-Public Use
  Company Number: PHEH2011US012256

PATIENT
  Sex: Male

DRUGS (1)
  1. AFINITOR [Suspect]
     Dates: start: 20111002

REACTIONS (1)
  - PNEUMONIA [None]
